FAERS Safety Report 9484311 (Version 2)
Quarter: 2013Q3

REPORT INFORMATION
  Report Type: Spontaneous
  Country: CA (occurrence: CA)
  Receive Date: 20130828
  Receipt Date: 20130828
  Transmission Date: 20140515
  Serious: Yes (Hospitalization)
  Sender: FDA-Public Use
  Company Number: CA-AMGEN-KDL395413

PATIENT
  Age: 0 Day
  Sex: Female
  Weight: 2.56 kg

DRUGS (4)
  1. ENBREL [Suspect]
     Dosage: 2 ML, QWK
     Route: 064
     Dates: start: 20041122, end: 20090324
  2. PRENATAL VITAMINS [Concomitant]
     Dosage: UNK UNK, QD
     Route: 064
     Dates: start: 200905
  3. HYDROCORTISONE [Concomitant]
     Dosage: UNK UNK, PRN
     Route: 061
     Dates: start: 20050407
  4. NORTHISTERONE ACETATE/ETHINYLOESTRADIOL [Concomitant]
     Dosage: UNK UNK, QD
     Dates: start: 20090129, end: 20090425

REACTIONS (2)
  - Oxygen saturation decreased [Recovered/Resolved]
  - Premature baby [Unknown]
